FAERS Safety Report 10061560 (Version 1)
Quarter: 2014Q2

REPORT INFORMATION
  Report Type: Spontaneous
  Country: IR (occurrence: None)
  Receive Date: 20140403
  Receipt Date: 20140403
  Transmission Date: 20141212
  Serious: Yes (Disabling, Other)
  Sender: FDA-Public Use
  Company Number: 2014P1002703

PATIENT
  Age: 57 Year
  Sex: Male

DRUGS (5)
  1. HYDROXYCHLOROQUINE [Suspect]
     Indication: RHEUMATOID ARTHRITIS
  2. PREDNISOLONE [Concomitant]
  3. LAMIVUDINE [Concomitant]
  4. ZIDOVUDINE [Concomitant]
  5. EFAVIRENZ [Concomitant]

REACTIONS (3)
  - Deafness [None]
  - Audiogram abnormal [None]
  - Tympanometry abnormal [None]
